FAERS Safety Report 20688847 (Version 1)
Quarter: 2022Q2

REPORT INFORMATION
  Report Type: Spontaneous
  Country: FR (occurrence: FR)
  Receive Date: 20220408
  Receipt Date: 20220408
  Transmission Date: 20220721
  Serious: Yes (Hospitalization)
  Sender: FDA-Public Use
  Company Number: None

PATIENT
  Age: 89 Year
  Sex: Female
  Weight: 64 kg

DRUGS (8)
  1. DULOXETINE HYDROCHLORIDE [Suspect]
     Active Substance: DULOXETINE HYDROCHLORIDE
     Indication: Depression
     Dosage: UNIT DOSE:30 MG, FREQUENCY TIME- 1 DAY,
     Route: 048
  2. RISPERDAL [Suspect]
     Active Substance: RISPERIDONE
     Indication: Product used for unknown indication
     Dosage: FORM STRENGTH:1 MG/ML, UNIT DOSE:0.5 MG, FREQUENCY TIME- 1 DAY,
     Route: 048
  3. EFFEXOR [Suspect]
     Active Substance: VENLAFAXINE HYDROCHLORIDE
     Indication: Depression
     Dosage: FORM STRENGTH: 75 MG, UNIT DOSE: 75 MG, FREQUENCY TIME- 1 DAY,
     Route: 048
  4. ESOMEPRAZOLE [Concomitant]
     Active Substance: ESOMEPRAZOLE
     Dosage: UNIT DOSE: 40 MG, FREQUENCY TIME- 1 DAY,
     Route: 048
  5. ASCORBIC ACID\FERROUS SULFATE [Concomitant]
     Active Substance: ASCORBIC ACID\FERROUS SULFATE
     Dosage: UNIT DOSE: 50 MG, FREQUENCY TIME- 1 DAY,
     Route: 048
  6. FOLIC ACID [Concomitant]
     Active Substance: FOLIC ACID
     Dosage: FORM STRENGTH:5 MG, UNIT DOSE: 5 MG, FREQUENCY TIME- 1 DAY,
     Route: 048
  7. BISOPROLOL [Concomitant]
     Active Substance: BISOPROLOL
     Dosage: 10 MG, FOUR-SCORED, FORM STRENGTH:10 MG, UNIT DOSE: 20 MG, FREQUENCY TIME- 1 DAY,
     Route: 048
  8. LEVOTHYROXINE [Concomitant]
     Active Substance: LEVOTHYROXINE
     Dosage: SCORED TABLET FORM STRENGTH:25 MICROGRAMS, UNIT DOSE: 25 MICROGRAMS, FREQUENCY TIME- 1 DAY,
     Route: 048

REACTIONS (1)
  - Generalised tonic-clonic seizure [Recovered/Resolved]

NARRATIVE: CASE EVENT DATE: 20211104
